FAERS Safety Report 16001781 (Version 3)
Quarter: 2021Q1

REPORT INFORMATION
  Report Type: Spontaneous
  Country: US (occurrence: US)
  Receive Date: 20190225
  Receipt Date: 20210302
  Transmission Date: 20210419
  Serious: No
  Sender: FDA-Public Use
  Company Number: US-ALLERGAN-1903406US

PATIENT
  Age: 69 Year
  Sex: Male

DRUGS (25)
  1. NEUPRO [Concomitant]
     Active Substance: ROTIGOTINE
     Indication: PRODUCT USED FOR UNKNOWN INDICATION
     Dosage: 4 MG, QD
     Route: 065
  2. VITAMIN D3 [Concomitant]
     Active Substance: CHOLECALCIFEROL
     Indication: PRODUCT USED FOR UNKNOWN INDICATION
     Dosage: 2000 UNITS, UNK
     Route: 065
  3. TYLENOL [Concomitant]
     Active Substance: ACETAMINOPHEN
  4. GOCOVRI [Suspect]
     Active Substance: AMANTADINE
     Dosage: 137 MG, QHS
     Route: 048
     Dates: end: 202004
  5. RYTARY [Concomitant]
     Active Substance: CARBIDOPA\LEVODOPA
     Indication: PRODUCT USED FOR UNKNOWN INDICATION
     Dosage: 145 MG, UNK
     Route: 065
  6. GOCOVRI [Suspect]
     Active Substance: AMANTADINE
     Dosage: 274 MG, QHS
     Route: 048
     Dates: start: 2018
  7. GOCOVRI [Suspect]
     Active Substance: AMANTADINE
     Dosage: 137 MG, QHS
     Route: 048
     Dates: start: 2018, end: 2018
  8. GOCOVRI [Suspect]
     Active Substance: AMANTADINE
     Dosage: 137 MG, QHS
     Route: 048
     Dates: start: 20180126, end: 20180201
  9. FISH OIL [Concomitant]
     Active Substance: FISH OIL
     Indication: PRODUCT USED FOR UNKNOWN INDICATION
     Dosage: 1000 MG, UNK
     Route: 065
  10. FLOMAX [Concomitant]
     Active Substance: TAMSULOSIN HYDROCHLORIDE
     Indication: PRODUCT USED FOR UNKNOWN INDICATION
     Dosage: 0.4 MG, UNK
     Route: 065
  11. SIMVASTATIN. [Concomitant]
     Active Substance: SIMVASTATIN
     Indication: PRODUCT USED FOR UNKNOWN INDICATION
     Dosage: 20 MG, UNK
     Route: 065
  12. MAGNESIUM [Concomitant]
     Active Substance: MAGNESIUM
  13. MELATONIN [Concomitant]
     Active Substance: MELATONIN
     Indication: NUTRITIONAL SUPPLEMENTATION
     Route: 065
  14. OMEGA 3                            /01333901/ [Concomitant]
     Active Substance: FISH OIL\TOCOPHEROL
  15. STOOL SOFTENER (DOCUSATE) [Concomitant]
     Active Substance: DOCUSATE
  16. TURMERIC                           /01079602/ [Concomitant]
     Active Substance: HERBALS\TURMERIC
  17. GOCOVRI [Suspect]
     Active Substance: AMANTADINE
     Dosage: 274 MG, QD
     Route: 048
     Dates: start: 20180202, end: 2018
  18. QUETIAPINE. [Concomitant]
     Active Substance: QUETIAPINE
     Indication: PRODUCT USED FOR UNKNOWN INDICATION
     Dosage: UNK
     Route: 065
  19. GOCOVRI [Suspect]
     Active Substance: AMANTADINE
     Indication: PARKINSON^S DISEASE
     Dosage: 137 MG, QHS
     Route: 048
     Dates: start: 20200605, end: 2020
  20. GOCOVRI [Suspect]
     Active Substance: AMANTADINE
     Dosage: 274 MG, QHS
     Route: 048
     Dates: start: 202004, end: 20200505
  21. GOCOVRI [Suspect]
     Active Substance: AMANTADINE
     Dosage: 274 MG, QHS
     Route: 048
     Dates: start: 2020
  22. OXYCONTIN [Suspect]
     Active Substance: OXYCODONE HYDROCHLORIDE
     Indication: PAIN
     Dosage: UNK
     Route: 065
     Dates: start: 20180710
  23. NORCO [Suspect]
     Active Substance: ACETAMINOPHEN\HYDROCODONE BITARTRATE
     Indication: PRODUCT USED FOR UNKNOWN INDICATION
     Dosage: UNK
     Route: 065
  24. SELEGILINE [Concomitant]
     Active Substance: SELEGILINE
     Indication: PRODUCT USED FOR UNKNOWN INDICATION
     Dosage: 5 MG, UNK
     Route: 065
  25. MELOXICAM. [Concomitant]
     Active Substance: MELOXICAM

REACTIONS (11)
  - Hallucinations, mixed [Not Recovered/Not Resolved]
  - Hypersomnia [Unknown]
  - Psychotic disorder [Not Recovered/Not Resolved]
  - Nightmare [Recovering/Resolving]
  - Insomnia [Not Recovered/Not Resolved]
  - Arthropathy [Recovered/Resolved]
  - Back pain [Not Recovered/Not Resolved]
  - Irritability [Recovering/Resolving]
  - Confusional state [Not Recovered/Not Resolved]
  - Drug interaction [Unknown]
  - Anxiety [Recovering/Resolving]

NARRATIVE: CASE EVENT DATE: 2018
